FAERS Safety Report 25889066 (Version 3)
Quarter: 2025Q4

REPORT INFORMATION
  Report Type: Report from Study
  Country: CA (occurrence: CA)
  Receive Date: 20251007
  Receipt Date: 20251104
  Transmission Date: 20260118
  Serious: Yes (Hospitalization)
  Sender: BOEHRINGER INGELHEIM
  Company Number: CA-BoehringerIngelheim-2025-BI-000166

PATIENT
  Age: 67 Year
  Sex: Female

DRUGS (3)
  1. OFEV [Suspect]
     Active Substance: NINTEDANIB
     Indication: Interstitial lung disease
     Dates: start: 20241230, end: 20250718
  2. OFEV [Suspect]
     Active Substance: NINTEDANIB
     Dates: start: 20250721
  3. OFEV [Suspect]
     Active Substance: NINTEDANIB

REACTIONS (7)
  - Cellulitis [Recovered/Resolved]
  - Pleural effusion [Recovered/Resolved]
  - Gastrointestinal disorder [Recovering/Resolving]
  - Nausea [Not Recovered/Not Resolved]
  - Diarrhoea [Recovered/Resolved]
  - Asthenia [Unknown]
  - Fatigue [Unknown]
